FAERS Safety Report 8669563 (Version 2)
Quarter: 2012Q4

REPORT INFORMATION
  Report Type: 
  Country: US (occurrence: US)
  Receive Date: 20120718
  Receipt Date: 20120928
  Transmission Date: 20130627
  Serious: No
  Sender: FDA-Public Use
  Company Number: US-PFIZER INC-2012169662

PATIENT
  Age: 64 Year
  Sex: Female
  Weight: 86.17 kg

DRUGS (10)
  1. TIKOSYN [Suspect]
     Indication: ATRIAL FIBRILLATION
     Dosage: 250 ug, 2x/day
     Route: 048
     Dates: start: 20111220
  2. TOPROL XL [Concomitant]
     Dosage: 50 mg, 1x/day
  3. FOLIC ACID [Concomitant]
     Dosage: 10 mg, 1x/day
  4. DIOVANE [Concomitant]
     Dosage: 320 mg, UNK
  5. SINGULAIR [Concomitant]
     Dosage: 10 mg, UNK
  6. COUMADINE [Concomitant]
     Dosage: 5 mg, UNK
  7. ADVAIR DISKUS [Concomitant]
     Indication: ASTHMA
     Dosage: 500/50
  8. OXYGEN [Concomitant]
     Dosage: UNK
  9. BABY ASPIRIN [Concomitant]
     Dosage: 81 mg, 3x/week
  10. DEXLANSOPRAZOLE [Concomitant]
     Dosage: UNK

REACTIONS (1)
  - Amnesia [Not Recovered/Not Resolved]
